FAERS Safety Report 17478615 (Version 3)
Quarter: 2020Q2

REPORT INFORMATION
  Report Type: Spontaneous
  Country: FI (occurrence: FI)
  Receive Date: 20200228
  Receipt Date: 20200414
  Transmission Date: 20200713
  Serious: Yes (Hospitalization, Other)
  Sender: FDA-Public Use
  Company Number: FI-MYLANLABS-2020M1021260

PATIENT
  Age: 75 Year
  Sex: Male

DRUGS (1)
  1. TRAMADOL. [Suspect]
     Active Substance: TRAMADOL
     Indication: PRODUCT USED FOR UNKNOWN INDICATION
     Dosage: 300 MILLIGRAM DAILY; 150 MG 2 TIMES A DAY
     Route: 065

REACTIONS (4)
  - Disorientation [Unknown]
  - Confusional state [Recovering/Resolving]
  - Delirium [Recovering/Resolving]
  - Fall [Unknown]
